FAERS Safety Report 4907671-1 (Version None)
Quarter: 2006Q1

REPORT INFORMATION
  Report Type: 
  Country: None (occurrence: None)
  Receive Date: 20060210
  Receipt Date: 20030623
  Transmission Date: 20060701
  Serious: Yes (Hospitalization)
  Sender: FDA-Public Use
  Company Number: FR-MERCK-0306FRA00076

PATIENT
  Age: 55 Year
  Sex: Male

DRUGS (2)
  1. FOSAMAX [Suspect]
     Route: 048
     Dates: start: 20010615, end: 20030415
  2. PREDNISONE [Concomitant]
     Route: 048
     Dates: start: 20030301

REACTIONS (1)
  - RETROPERITONEAL FIBROSIS [None]
